FAERS Safety Report 21447828 (Version 1)
Quarter: 2022Q4

REPORT INFORMATION
  Report Type: Spontaneous
  Country: JP (occurrence: JP)
  Receive Date: 20221012
  Receipt Date: 20221012
  Transmission Date: 20230113
  Serious: Yes (Other)
  Sender: FDA-Public Use
  Company Number: JP-BAYER-2022A135454

PATIENT

DRUGS (1)
  1. IOPAMIRON [Suspect]
     Active Substance: IOPAMIDOL
     Indication: Computerised tomogram
     Route: 058

REACTIONS (4)
  - Compartment syndrome [Unknown]
  - Injection site swelling [Unknown]
  - Injection site pain [Unknown]
  - Infusion site extravasation [Unknown]
